FAERS Safety Report 19566640 (Version 1)
Quarter: 2021Q3

REPORT INFORMATION
  Report Type: Spontaneous
  Country: RU (occurrence: RU)
  Receive Date: 20210715
  Receipt Date: 20210715
  Transmission Date: 20211014
  Serious: Yes (Other)
  Sender: FDA-Public Use
  Company Number: RU-JNJFOC-20210724301

PATIENT
  Age: 43 Year
  Sex: Male
  Weight: 45 kg

DRUGS (11)
  1. RALTEGRAVIR. [Suspect]
     Active Substance: RALTEGRAVIR
     Indication: HIV INFECTION
     Dosage: 800 UNITS NOT REPORTED
     Route: 048
     Dates: start: 20210518, end: 20210617
  2. TENOFOVIR DISOPROXIL [Suspect]
     Active Substance: TENOFOVIR DISOPROXIL
     Indication: HIV INFECTION
     Dosage: 300 UNITS NOT REPORTED
     Route: 048
     Dates: start: 20210518, end: 20210617
  3. SIRTURO [Suspect]
     Active Substance: BEDAQUILINE FUMARATE
     Indication: TUBERCULOSIS
     Dosage: 400 UNITS NOT REPORTED
     Route: 048
     Dates: start: 20210519
  4. CEFOXITIN [Suspect]
     Active Substance: CEFOXITIN SODIUM
     Indication: TUBERCULOSIS
     Dosage: 100 UNITS NOT REPORTED
     Route: 065
     Dates: start: 20210519
  5. FLUCONAZOLE. [Suspect]
     Active Substance: FLUCONAZOLE
     Indication: PRODUCT USED FOR UNKNOWN INDICATION
     Route: 065
     Dates: start: 20210430
  6. LINEZOLID. [Suspect]
     Active Substance: LINEZOLID
     Indication: TUBERCULOSIS
     Dosage: 600 UNITS NOT REPORTED
     Route: 065
     Dates: start: 20210519
  7. LEVOFLOXACIN. [Suspect]
     Active Substance: LEVOFLOXACIN
     Indication: TUBERCULOSIS
     Dosage: 750 UNITS NOT REPORTED
     Route: 065
     Dates: start: 20210519
  8. 3TC [Suspect]
     Active Substance: LAMIVUDINE
     Indication: HIV INFECTION
     Dosage: 300 UNITS NOT REPORTED
     Route: 048
     Dates: start: 20210518, end: 20210617
  9. RITONAVIR. [Suspect]
     Active Substance: RITONAVIR
     Indication: HIV INFECTION
     Dosage: 100 UNITS NOT REPORTED
     Route: 048
     Dates: start: 20210518, end: 20210617
  10. COTRIMOXAZOLE [Suspect]
     Active Substance: SULFAMETHOXAZOLE\TRIMETHOPRIM
     Indication: PRODUCT USED FOR UNKNOWN INDICATION
     Route: 065
     Dates: start: 20210430, end: 20210617
  11. PREZISTA [Suspect]
     Active Substance: DARUNAVIR ETHANOLATE
     Indication: HIV INFECTION
     Dosage: 800 UNITS NOT REPORTED
     Route: 048
     Dates: start: 20210518, end: 20210617

REACTIONS (1)
  - Anaemia [Recovering/Resolving]

NARRATIVE: CASE EVENT DATE: 20210602
